FAERS Safety Report 8824379 (Version 6)
Quarter: 2016Q1

REPORT INFORMATION
  Report Type: Spontaneous
  Country: US (occurrence: US)
  Receive Date: 20121004
  Receipt Date: 20160303
  Transmission Date: 20160526
  Serious: Yes (Hospitalization, Other)
  Sender: FDA-Public Use
  Company Number: US-BAYER-2012-102541

PATIENT
  Age: 25 Year
  Sex: Female
  Weight: 65.76 kg

DRUGS (4)
  1. BENADRYL [Concomitant]
     Active Substance: DIPHENHYDRAMINE HYDROCHLORIDE
     Indication: CONTRAST MEDIA ALLERGY
  2. ZYRTEC [Concomitant]
     Active Substance: CETIRIZINE HYDROCHLORIDE
  3. YAZ [Suspect]
     Active Substance: DROSPIRENONE\ETHINYL ESTRADIOL
     Indication: ACNE
     Dosage: UNK
     Dates: start: 200803, end: 201007
  4. GIANVI [Suspect]
     Active Substance: DROSPIRENONE\ETHINYL ESTRADIOL
     Dosage: UNK
     Dates: start: 20100709, end: 20101003

REACTIONS (18)
  - Axillary vein thrombosis [None]
  - Injury [Recovered/Resolved]
  - Anhedonia [None]
  - Pulmonary embolism [Recovered/Resolved]
  - Deep vein thrombosis [None]
  - Psychological trauma [None]
  - Peripheral swelling [None]
  - Dyspnoea [Recovered/Resolved]
  - Lethargy [Recovered/Resolved]
  - Fear of disease [None]
  - Subclavian vein thrombosis [None]
  - Skin discolouration [None]
  - Pain [Recovered/Resolved]
  - Pneumothorax [Recovered/Resolved]
  - Anxiety [None]
  - Renal failure [None]
  - Pain in extremity [None]
  - Asthenia [Recovered/Resolved]

NARRATIVE: CASE EVENT DATE: 20101003
